FAERS Safety Report 4436671-3 (Version None)
Quarter: 2004Q3

REPORT INFORMATION
  Report Type: 
  Country: None (occurrence: None)
  Receive Date: 20040728
  Receipt Date: 20031024
  Transmission Date: 20050211
  Serious: Yes (Other)
  Sender: FDA-Public Use
  Company Number: 203031

PATIENT
  Age: 24 Year
  Sex: Female

DRUGS (1)
  1. RITUXAN [Suspect]
     Indication: HODGKIN'S DISEASE
     Dosage: INTRAVENOUS
     Route: 042
     Dates: start: 20030101

REACTIONS (1)
  - BRONCHOSPASM [None]
